FAERS Safety Report 9891376 (Version 2)
Quarter: 2014Q1

REPORT INFORMATION
  Report Type: Spontaneous
  Country: US (occurrence: None)
  Receive Date: 20140210
  Receipt Date: 20140228
  Transmission Date: 20141002
  Serious: Yes (Death)
  Sender: FDA-Public Use
  Company Number: UTC-044213

PATIENT
  Age: 70 Year
  Sex: Female
  Weight: 57.73 kg

DRUGS (2)
  1. TYVASO (6 MICROGRAM, AEROSOL FOR INHALATION) (TREPROSTINIL SODIUM) [Suspect]
     Indication: PULMONARY ARTERIAL HYPERTENSION
     Dosage: 54 TO 72 MCGS (4 IN 1 D), INHALATION
     Route: 055
     Dates: start: 20100908
  2. ADCIRCA (TADALAFIL) (UNKNOWN) [Concomitant]

REACTIONS (4)
  - Unresponsive to stimuli [None]
  - Acute psychosis [None]
  - Right ventricular failure [None]
  - Arrhythmia [None]
